FAERS Safety Report 5046901-5 (Version None)
Quarter: 2006Q2

REPORT INFORMATION
  Report Type: 
  Country: None (occurrence: None)
  Receive Date: 20060630
  Receipt Date: 20060627
  Transmission Date: 20061013
  Serious: Yes (Life-Threatening, Other)
  Sender: FDA-Public Use
  Company Number: HQWYE424627JUN06

PATIENT
  Age: 74 Year
  Sex: Male

DRUGS (5)
  1. AMIODARONE HCL [Suspect]
     Indication: ATRIAL FIBRILLATION
     Dosage: 300 MG 1X PER 1 DAY INTRAVENOUS
     Route: 042
     Dates: start: 20060616, end: 20060616
  2. RAMIPRIL [Concomitant]
  3. LASIX [Concomitant]
  4. HALCION [Concomitant]
  5. INDOXEN (INDOMETACIN) [Concomitant]

REACTIONS (3)
  - BRONCHOSPASM [None]
  - HYPOTENSION [None]
  - TREMOR [None]
